FAERS Safety Report 8002842-2 (Version None)
Quarter: 2011Q4

REPORT INFORMATION
  Report Type: 
  Country: None (occurrence: None)
  Receive Date: 20111222
  Receipt Date: 20101206
  Transmission Date: 20120403
  Serious: No
  Sender: FDA-Public Use
  Company Number: US-GLAXOSMITHKLINE-A0897989A

PATIENT
  Age: 75 Year
  Sex: Male

DRUGS (3)
  1. AVODART [Suspect]
     Indication: URINARY TRACT DISORDER
     Route: 048
     Dates: start: 20091201, end: 20101205
  2. HORMONE TREATMENT [Concomitant]
     Indication: PROSTATIC DISORDER
  3. FLOMAX [Concomitant]

REACTIONS (2)
  - GASTRIC PH DECREASED [None]
  - NAUSEA [None]
